FAERS Safety Report 5971044-3 (Version None)
Quarter: 2008Q4

REPORT INFORMATION
  Report Type: 
  Country: None (occurrence: None)
  Receive Date: 20081128
  Receipt Date: 20081118
  Transmission Date: 20090506
  Serious: Yes (Other)
  Sender: FDA-Public Use
  Company Number: PHEH2008US05645

PATIENT
  Sex: Male
  Weight: 72.562 kg

DRUGS (3)
  1. AREDIA [Suspect]
     Dosage: 90 MG, EVERY MONTH
     Route: 042
  2. ZOMETA [Suspect]
     Dosage: 4 MG, UNK
     Dates: start: 20030101, end: 20050101
  3. INTERFERON [Concomitant]

REACTIONS (12)
  - ANHEDONIA [None]
  - ANXIETY [None]
  - BACTERIA TISSUE SPECIMEN IDENTIFIED [None]
  - BONE DISORDER [None]
  - DEBRIDEMENT [None]
  - DISABILITY [None]
  - EXCESSIVE GRANULATION TISSUE [None]
  - INJURY [None]
  - OSTEONECROSIS [None]
  - PAIN [None]
  - RESORPTION BONE INCREASED [None]
  - TOOTH EXTRACTION [None]
